FAERS Safety Report 10222381 (Version 1)
Quarter: 2014Q2

REPORT INFORMATION
  Report Type: Report from Study
  Country: NO (occurrence: NO)
  Receive Date: 20140606
  Receipt Date: 20140606
  Transmission Date: 20141212
  Serious: Yes (Other)
  Sender: FDA-Public Use
  Company Number: NO-B.I. PHARMACEUTICALS,INC./RIDGEFIELD-2014-BI-25406GD

PATIENT
  Sex: 0

DRUGS (1)
  1. CATAPRESAN [Suspect]
     Indication: CHRONIC FATIGUE SYNDROME
     Route: 048

REACTIONS (1)
  - Duodenal ulcer [Unknown]
